FAERS Safety Report 5470455-2 (Version None)
Quarter: 2007Q3

REPORT INFORMATION
  Report Type: 
  Country: None (occurrence: None)
  Receive Date: 20070820
  Receipt Date: 20070510
  Transmission Date: 20080115
  Serious: No
  Sender: FDA-Public Use
  Company Number: WAES 0705USA02260

PATIENT
  Age: 64 Year
  Sex: Female

DRUGS (11)
  1. JANUVIA [Suspect]
     Indication: BLOOD GLUCOSE
     Dosage: 100 MG/DAILY/PO
     Route: 048
     Dates: start: 20070201
  2. AMARYL [Concomitant]
  3. AVANDIA [Concomitant]
  4. COZAAR [Concomitant]
  5. LIPITOR [Concomitant]
  6. MERIDIA [Concomitant]
  7. SINGULAIR [Concomitant]
  8. THERAPY UNSPECIFIED [Concomitant]
  9. ALBUTEROL [Concomitant]
  10. CALCIUM CITRATE [Concomitant]
  11. METFORMIN [Concomitant]

REACTIONS (1)
  - COUGH [None]
